FAERS Safety Report 7250447-3 (Version None)
Quarter: 2011Q1

REPORT INFORMATION
  Report Type: 
  Country: None (occurrence: None)
  Receive Date: 20110128
  Receipt Date: 20110124
  Transmission Date: 20110831
  Serious: Yes (Hospitalization)
  Sender: FDA-Public Use
  Company Number: IT-ROCHE-755104

PATIENT
  Sex: Female

DRUGS (9)
  1. TICLOPIDINE HCL [Concomitant]
     Route: 048
  2. OMEPRAZOLE [Concomitant]
     Route: 048
  3. CINACALCET HYDROCHLORIDE [Concomitant]
     Route: 048
  4. OLMESARTAN MEDOXOMIL [Concomitant]
     Route: 048
  5. MIRCERA [Suspect]
     Indication: NEPHROGENIC ANAEMIA
     Route: 058
     Dates: start: 20110115, end: 20110115
  6. CALCIUM CARBONATE [Concomitant]
     Route: 048
  7. SEVELAMER [Concomitant]
     Route: 048
  8. ATENOLOL [Concomitant]
     Route: 048
  9. FRAXIPARINA [Concomitant]
     Route: 058

REACTIONS (2)
  - PHOSPHENES [None]
  - HEADACHE [None]
